FAERS Safety Report 13749268 (Version 3)
Quarter: 2017Q3

REPORT INFORMATION
  Report Type: Spontaneous
  Country: US (occurrence: US)
  Receive Date: 20170713
  Receipt Date: 20170901
  Transmission Date: 20171127
  Serious: No
  Sender: FDA-Public Use
  Company Number: US-GLAXOSMITHKLINE-US2017GSK107153

PATIENT
  Age: 71 Year
  Sex: Female

DRUGS (4)
  1. BREO ELLIPTA [Suspect]
     Active Substance: FLUTICASONE FUROATE\VILANTEROL TRIFENATATE
     Indication: CEREBRAL DISORDER
     Dosage: 1 PUFF(S), QD
     Route: 055
     Dates: start: 2016
  2. AMITRIPTYLINE [Concomitant]
     Active Substance: AMITRIPTYLINE
  3. XANAX [Concomitant]
     Active Substance: ALPRAZOLAM
  4. CARVEDILOL. [Concomitant]
     Active Substance: CARVEDILOL

REACTIONS (8)
  - Underdose [Unknown]
  - Dyspnoea [Unknown]
  - Thinking abnormal [Unknown]
  - Asthenia [Unknown]
  - Drug ineffective [Unknown]
  - Product quality issue [Unknown]
  - Malaise [Unknown]
  - Off label use [Unknown]

NARRATIVE: CASE EVENT DATE: 201707
